FAERS Safety Report 10032454 (Version 2)
Quarter: 2014Q1

REPORT INFORMATION
  Report Type: Spontaneous
  Country: US (occurrence: US)
  Receive Date: 20140324
  Receipt Date: 20140324
  Transmission Date: 20141002
  Serious: Yes (Hospitalization, Other)
  Sender: FDA-Public Use
  Company Number: US-GILEAD-2014-0096854

PATIENT
  Sex: Male
  Weight: 93.42 kg

DRUGS (2)
  1. LETAIRIS [Suspect]
     Indication: PORTOPULMONARY HYPERTENSION
     Dosage: 10 MG, QD
     Route: 048
  2. LETAIRIS [Suspect]
     Indication: HEPATIC CIRRHOSIS

REACTIONS (1)
  - Post procedural haemorrhage [Unknown]
